FAERS Safety Report 16164575 (Version 6)
Quarter: 2019Q4

REPORT INFORMATION
  Report Type: Spontaneous
  Country: FR (occurrence: FR)
  Receive Date: 20190405
  Receipt Date: 20191217
  Transmission Date: 20200122
  Serious: Yes (Death)
  Sender: FDA-Public Use
  Company Number: FR-ALLERGAN-1914745US

PATIENT
  Sex: Female

DRUGS (17)
  1. CLORAZEPATE DIPOTASSIUM. [Suspect]
     Active Substance: CLORAZEPATE DIPOTASSIUM
     Indication: CEREBRAL PALSY
     Dosage: UNK, UNKNOWN
     Route: 065
  2. METOCLOPRAMIDE HYDROCHLORIDE. [Suspect]
     Active Substance: METOCLOPRAMIDE HYDROCHLORIDE
     Indication: CEREBRAL PALSY
     Dosage: UNK, UNKNOWN
     Route: 065
  3. TRANXENE [Suspect]
     Active Substance: CLORAZEPATE DIPOTASSIUM
     Indication: CEREBRAL PALSY
     Dosage: UNK, UNKNOWN
     Route: 065
  4. GENTAMICIN B.BRAUN [Suspect]
     Active Substance: GENTAMICIN SULFATE
     Indication: CEREBRAL PALSY
     Dosage: UNK, UNKNOWN
     Route: 065
  5. RANITIDINE HYDROCHLORIDE. [Suspect]
     Active Substance: RANITIDINE HYDROCHLORIDE
     Indication: CEREBRAL PALSY
     Dosage: UNK, UNKNOWN
     Route: 065
  6. IPRATROPIUM [Suspect]
     Active Substance: IPRATROPIUM
     Indication: CEREBRAL PALSY
     Dosage: UNK, UNKNOWN
     Route: 065
  7. LEVETIRACETAM. [Suspect]
     Active Substance: LEVETIRACETAM
     Indication: CEREBRAL PALSY
     Dosage: UNK, UNKNOWN
     Route: 065
  8. IBUPROFEN. [Suspect]
     Active Substance: IBUPROFEN
     Indication: CEREBRAL PALSY
     Dosage: UNK, UNKNOWN
     Route: 065
  9. LEVALBUTEROL. [Suspect]
     Active Substance: LEVALBUTEROL
     Indication: CEREBRAL PALSY
     Dosage: UNK, UNKNOWN
     Route: 065
  10. LACTULOSE. [Suspect]
     Active Substance: LACTULOSE
     Indication: CEREBRAL PALSY
     Dosage: UNK, UNKNOWN
     Route: 065
  11. BOTOX [Suspect]
     Active Substance: ONABOTULINUMTOXINA
     Indication: CEREBRAL PALSY
     Dosage: UNK, SINGLE
     Route: 030
  12. CETIRIZINE HYDROCHLORIDE. [Suspect]
     Active Substance: CETIRIZINE HYDROCHLORIDE
     Indication: CEREBRAL PALSY
     Dosage: UNK, UNKNOWN
     Route: 065
  13. BACLOFEN. [Suspect]
     Active Substance: BACLOFEN
     Indication: CEREBRAL PALSY
     Dosage: UNK, UNKNOWN
     Route: 065
  14. GABAPENTIN. [Suspect]
     Active Substance: GABAPENTIN
     Indication: CEREBRAL PALSY
     Dosage: UNK, UNKNOWN
     Route: 065
  15. CATAPRESSAN [Suspect]
     Active Substance: CLONIDINE
     Indication: CEREBRAL PALSY
     Dosage: 0.15 MG, QD
     Route: 048
  16. VALPROIC ACID. [Suspect]
     Active Substance: VALPROIC ACID
     Indication: CEREBRAL PALSY
     Dosage: UNK, UNKNOWN
     Route: 065
  17. BUDESONIDE. [Suspect]
     Active Substance: BUDESONIDE
     Indication: CEREBRAL PALSY
     Dosage: UNK, UNKNOWN
     Route: 065

REACTIONS (4)
  - Seizure [Fatal]
  - Off label use [Unknown]
  - Muscular weakness [Fatal]
  - Pneumonia [Fatal]
